FAERS Safety Report 7185754-6 (Version None)
Quarter: 2010Q4

REPORT INFORMATION
  Report Type: 
  Country: None (occurrence: None)
  Receive Date: 20101222
  Receipt Date: 20100608
  Transmission Date: 20110411
  Serious: No
  Sender: FDA-Public Use
  Company Number: US-AMGEN-TCS417304

PATIENT

DRUGS (1)
  1. ENBREL [Suspect]
     Indication: RHEUMATOID ARTHRITIS
     Dosage: 50 MG, QWK
     Route: 058
     Dates: start: 20100101

REACTIONS (8)
  - ABDOMINAL PAIN UPPER [None]
  - BLADDER DISORDER [None]
  - COUGH [None]
  - DIARRHOEA [None]
  - FUNGAL SKIN INFECTION [None]
  - NAIL INFECTION [None]
  - TREMOR [None]
  - UTERINE PROLAPSE [None]
